FAERS Safety Report 16937711 (Version 2)
Quarter: 2020Q2

REPORT INFORMATION
  Report Type: Spontaneous
  Country: US (occurrence: US)
  Receive Date: 20191018
  Receipt Date: 20200512
  Transmission Date: 20200713
  Serious: Yes (Hospitalization)
  Sender: FDA-Public Use
  Company Number: US-BAYER-2019-183606

PATIENT
  Age: 15 Year
  Sex: Female

DRUGS (8)
  1. ESCITALOPRAM [Concomitant]
     Active Substance: ESCITALOPRAM OXALATE
  2. JAKAFI [Suspect]
     Active Substance: RUXOLITINIB
     Indication: GRAFT VERSUS HOST DISEASE
     Dosage: 10 MG, BID
     Route: 048
     Dates: start: 20190418, end: 20190919
  3. ESTRADIOL. [Suspect]
     Active Substance: ESTRADIOL
     Indication: OVARIAN FAILURE
     Dosage: UNK UNK, TIW
     Route: 062
  4. OXYCODONE [Concomitant]
     Active Substance: OXYCODONE
  5. OMEPRAZOLE. [Concomitant]
     Active Substance: OMEPRAZOLE
  6. URSODIOL. [Concomitant]
     Active Substance: URSODIOL
  7. AZITROMYCIN [Concomitant]
     Active Substance: AZITHROMYCIN ANHYDROUS
  8. GABAPENTIN. [Concomitant]
     Active Substance: GABAPENTIN

REACTIONS (3)
  - Product use issue [None]
  - Thrombosis [Recovering/Resolving]
  - Intracardiac thrombus [Recovering/Resolving]

NARRATIVE: CASE EVENT DATE: 20190909
